FAERS Safety Report 9380169 (Version 1)
Quarter: 2013Q2

REPORT INFORMATION
  Report Type: Spontaneous
  Country: DE (occurrence: None)
  Receive Date: 20130628
  Receipt Date: 20130628
  Transmission Date: 20140414
  Serious: Yes (Other)
  Sender: FDA-Public Use
  Company Number: AUR-APL-2013-05270

PATIENT
  Age: 31 Year
  Sex: Female

DRUGS (2)
  1. PAROXETINE (PAROXETINE) [Suspect]
     Indication: PANIC DISORDER
     Route: 048
     Dates: start: 20130222
  2. CIPRALEX [Suspect]
     Indication: PANIC DISORDER
     Route: 048
     Dates: start: 20121210, end: 20130120

REACTIONS (3)
  - Nocturia [None]
  - Pollakiuria [None]
  - Inappropriate antidiuretic hormone secretion [None]
